FAERS Safety Report 7224417-5 (Version None)
Quarter: 2011Q1

REPORT INFORMATION
  Report Type: 
  Country: None (occurrence: None)
  Receive Date: 20110113
  Receipt Date: 20110105
  Transmission Date: 20110831
  Serious: Yes (Other)
  Sender: FDA-Public Use
  Company Number: ZA-JNJFOC-20110100786

PATIENT
  Age: 6 Decade
  Sex: Female

DRUGS (4)
  1. TAVANIC [Suspect]
     Dosage: 500 (UNITS UNSPECIFIED)- FOR 10 DAYS
     Route: 042
  2. INSULIN [Concomitant]
     Indication: PRODUCT USED FOR UNKNOWN INDICATION
     Route: 065
  3. TAVANIC [Suspect]
     Indication: CELLULITIS
     Route: 048
  4. GLUCOPHAGE [Concomitant]
     Indication: PRODUCT USED FOR UNKNOWN INDICATION
     Route: 065

REACTIONS (3)
  - BLOOD ANTIDIURETIC HORMONE ABNORMAL [None]
  - INAPPROPRIATE SCHEDULE OF DRUG ADMINISTRATION [None]
  - BLOOD SODIUM DECREASED [None]
